FAERS Safety Report 7130793-4 (Version None)
Quarter: 2010Q4

REPORT INFORMATION
  Report Type: 
  Country: None (occurrence: None)
  Receive Date: 20101201
  Receipt Date: 20101119
  Transmission Date: 20110411
  Serious: Yes (Other)
  Sender: FDA-Public Use
  Company Number: PHBS2007JP17075

PATIENT
  Age: 63 Year
  Sex: Male

DRUGS (3)
  1. AREDIA [Suspect]
     Indication: MULTIPLE MYELOMA
     Route: 042
  2. ZOMETA [Suspect]
     Indication: MULTIPLE MYELOMA
     Route: 042
  3. INCADRONIC ACID [Suspect]

REACTIONS (3)
  - HYPERBARIC OXYGEN THERAPY [None]
  - ORAL SURGERY [None]
  - OSTEONECROSIS OF JAW [None]
